FAERS Safety Report 9875812 (Version 2)
Quarter: 2014Q1

REPORT INFORMATION
  Report Type: Other
  Country: US (occurrence: US)
  Receive Date: 20140206
  Receipt Date: 20140206
  Transmission Date: 20141002
  Serious: No
  Sender: FDA-Public Use
  Company Number: US-ACORDA-ACO_35360_2013

PATIENT
  Sex: 0

DRUGS (5)
  1. AMPYRA [Suspect]
     Indication: GAIT DISTURBANCE
     Dosage: 10 MG, EVERY 12 HOURS
     Route: 048
     Dates: start: 20111026
  2. VITAMIN D [Concomitant]
     Indication: FATIGUE
     Dosage: 1000 IU, QD
     Route: 048
     Dates: start: 20130220
  3. VITAMIN D [Concomitant]
     Indication: MULTIPLE SCLEROSIS
  4. POLYETHYLENE GLYCOL 3350 [Concomitant]
     Indication: PRODUCT USED FOR UNKNOWN INDICATION
     Dosage: 17 G, UNK
     Route: 048
     Dates: start: 20130128
  5. MULTIVITAMIN [Concomitant]
     Indication: PRODUCT USED FOR UNKNOWN INDICATION
     Dosage: UNK, QD
     Route: 048

REACTIONS (5)
  - Herpes zoster [Recovered/Resolved with Sequelae]
  - Chest discomfort [Recovered/Resolved]
  - Post herpetic neuralgia [None]
  - Polyarthritis [None]
  - Fatigue [None]
